FAERS Safety Report 6896622-9 (Version None)
Quarter: 2010Q3

REPORT INFORMATION
  Report Type: 
  Country: None (occurrence: None)
  Receive Date: 20100802
  Receipt Date: 20070118
  Transmission Date: 20110219
  Serious: No
  Sender: FDA-Public Use
  Company Number: US-PFIZER INC-2007005622

PATIENT
  Sex: Female
  Weight: 86.64 kg

DRUGS (10)
  1. LYRICA [Suspect]
     Indication: INTERVERTEBRAL DISC PROTRUSION
     Dates: start: 20070102
  2. AVANDIA [Concomitant]
  3. ZYRTEC [Concomitant]
  4. CELEXA [Concomitant]
  5. GLUCOPHAGE [Concomitant]
  6. GLIPIZIDE [Concomitant]
  7. LIPITOR [Concomitant]
  8. PROVERA [Concomitant]
  9. ESTROGENS SOL/INJ [Concomitant]
  10. LISINOPRIL [Concomitant]

REACTIONS (1)
  - WEIGHT INCREASED [None]
